FAERS Safety Report 9965081 (Version 1)
Quarter: 2014Q1

REPORT INFORMATION
  Report Type: Report from Study
  Country: US (occurrence: US)
  Receive Date: 20140305
  Receipt Date: 20140305
  Transmission Date: 20141002
  Serious: No
  Sender: FDA-Public Use
  Company Number: US-ABBVIE-13P-163-1127694-00

PATIENT
  Age: 74 Year
  Sex: Female

DRUGS (12)
  1. HUMIRA [Suspect]
     Indication: CROHN^S DISEASE
     Dosage: LOADING DOSE
     Dates: start: 20130729, end: 20130729
  2. HUMIRA [Suspect]
     Dosage: LOADING DOSE
  3. CYMBALTA [Concomitant]
     Indication: ANXIETY
     Dosage: ABOUT 3 YEARS
  4. CYMBALTA [Concomitant]
     Indication: NEURALGIA
  5. GABAPENTIN [Concomitant]
     Indication: NEURALGIA
     Dosage: ABOUT 3 YEARS
  6. CELEBREX [Concomitant]
     Indication: ARTHRITIS
  7. METOPROLOL [Concomitant]
     Indication: BLOOD PRESSURE
  8. SUCRALFATE [Concomitant]
     Indication: GASTRITIS PROPHYLAXIS
     Dosage: TWICE A DAY TO THREE TIMES A DAY
  9. OMEPRAZOLE [Concomitant]
     Indication: GASTRITIS PROPHYLAXIS
  10. SIMVASTATIN [Concomitant]
     Indication: BLOOD CHOLESTEROL
  11. OXYCODONE [Concomitant]
     Indication: PAIN
  12. RANITIDINE [Concomitant]
     Indication: DYSPEPSIA

REACTIONS (2)
  - Injection site pain [Recovered/Resolved]
  - Injection site pain [Recovered/Resolved]
